FAERS Safety Report 5053333-2 (Version None)
Quarter: 2006Q2

REPORT INFORMATION
  Report Type: 
  Country: None (occurrence: None)
  Receive Date: 20060629
  Receipt Date: 20060616
  Transmission Date: 20061013
  Serious: Yes (Hospitalization)
  Sender: FDA-Public Use
  Company Number: THYM-10468

PATIENT
  Sex: Male
  Weight: 70 kg

DRUGS (1)
  1. THYMOGLOBULIN [Suspect]
     Indication: APLASTIC ANAEMIA
     Dosage: 245 MG QD IV
     Route: 042
     Dates: start: 20050406, end: 20050407

REACTIONS (5)
  - CYTOKINE RELEASE SYNDROME [None]
  - FALL [None]
  - PYREXIA [None]
  - TACHYCARDIA [None]
  - VOMITING [None]
